FAERS Safety Report 8421469-1 (Version None)
Quarter: 2012Q2

REPORT INFORMATION
  Report Type: 
  Country: None (occurrence: None)
  Receive Date: 20120608
  Receipt Date: 20120607
  Transmission Date: 20120825
  Serious: No
  Sender: FDA-Public Use
  Company Number: PHHY2011AU116308

PATIENT
  Sex: Female

DRUGS (2)
  1. MICARDIS [Concomitant]
     Indication: HYPERTENSION
     Route: 048
  2. ZOLEDRONOC ACID [Suspect]
     Indication: OSTEOPOROSIS
     Dosage: 5 MG, UNK
     Route: 042
     Dates: start: 20100909

REACTIONS (1)
  - CATARACT [None]
